FAERS Safety Report 5942230-3 (Version None)
Quarter: 2008Q4

REPORT INFORMATION
  Report Type: 
  Country: None (occurrence: None)
  Receive Date: 20081031
  Receipt Date: 20081023
  Transmission Date: 20090506
  Serious: Yes (Other)
  Sender: FDA-Public Use
  Company Number: 2008SP016389

PATIENT
  Age: 54 Year
  Sex: Female

DRUGS (5)
  1. PEG-INTRON [Suspect]
     Indication: HEPATITIS C
     Dosage: 96 MCG; QW; SC
     Route: 058
     Dates: start: 20080504
  2. RIBAVIRIN [Suspect]
     Indication: HEPATITIS C
     Dosage: ; PO
     Route: 048
     Dates: start: 20080504
  3. PROCRIT [Concomitant]
  4. XANAX [Concomitant]
  5. AMBIEN [Concomitant]

REACTIONS (1)
  - PAPILLOEDEMA [None]
